FAERS Safety Report 10309534 (Version 3)
Quarter: 2015Q4

REPORT INFORMATION
  Report Type: Report from Study
  Country: US (occurrence: US)
  Receive Date: 20140717
  Receipt Date: 20151104
  Transmission Date: 20160304
  Serious: Yes (Other)
  Sender: FDA-Public Use
  Company Number: US-AMGEN-USASP2014052917

PATIENT
  Age: 46 Year
  Sex: Male

DRUGS (1)
  1. ENBREL [Suspect]
     Active Substance: ETANERCEPT
     Indication: RHEUMATOID ARTHRITIS
     Dosage: UNK
     Route: 065
     Dates: start: 2014, end: 201510

REACTIONS (6)
  - Unevaluable event [Unknown]
  - Malaise [Unknown]
  - Psoriasis [Unknown]
  - Listless [Unknown]
  - Autoimmune disorder [Unknown]
  - Lyme disease [Unknown]
